FAERS Safety Report 4974385-1 (Version None)
Quarter: 2006Q2

REPORT INFORMATION
  Report Type: 
  Country: None (occurrence: None)
  Receive Date: 20060410
  Receipt Date: 20060328
  Transmission Date: 20061013
  Serious: Yes (Hospitalization, Other)
  Sender: FDA-Public Use
  Company Number: 2006003205

PATIENT
  Age: 80 Year
  Sex: Male
  Weight: 73.4827 kg

DRUGS (9)
  1. LYRICA [Suspect]
     Indication: NEUROPATHY PERIPHERAL
     Dosage: 75 MG (75 MG, 1 IN 1 D), ORAL
     Route: 048
     Dates: start: 20051201, end: 20060103
  2. LIPITOR [Suspect]
     Indication: ILL-DEFINED DISORDER
     Dates: end: 20060101
  3. NIASPAN [Concomitant]
  4. ASPIRIN [Concomitant]
  5. TAMSULOSIN HCL [Concomitant]
  6. IRON (IRON) [Concomitant]
  7. TOPROL-XL [Suspect]
     Indication: ILL-DEFINED DISORDER
     Dates: end: 20060101
  8. FOSAMAX [Suspect]
     Indication: ILL-DEFINED DISORDER
     Dates: end: 20060101
  9. COUMADIN [Suspect]
     Indication: ILL-DEFINED DISORDER
     Dates: end: 20060101

REACTIONS (8)
  - ABASIA [None]
  - DECREASED ACTIVITY [None]
  - DIZZINESS [None]
  - DRUG INEFFECTIVE [None]
  - HYPOAESTHESIA [None]
  - MALAISE [None]
  - ULCER HAEMORRHAGE [None]
  - VISION BLURRED [None]
